FAERS Safety Report 18304285 (Version 1)
Quarter: 2020Q3

REPORT INFORMATION
  Report Type: Spontaneous
  Country: DE (occurrence: DE)
  Receive Date: 20200923
  Receipt Date: 20200923
  Transmission Date: 20201103
  Serious: Yes (Other)
  Sender: FDA-Public Use
  Company Number: DE-BAYER-2020-198595

PATIENT
  Age: 55 Year
  Sex: Female
  Weight: 100 kg

DRUGS (2)
  1. CIPROBAY 100/50 MG/ML [Suspect]
     Active Substance: CIPROFLOXACIN
     Dosage: 50 ML DAILY
     Dates: start: 201008, end: 201608
  2. ZYVOXID [Concomitant]
     Active Substance: LINEZOLID
     Dosage: 50 ML DAILY
     Dates: start: 201008, end: 201608

REACTIONS (8)
  - Nausea [Not Recovered/Not Resolved]
  - Peripheral sensory neuropathy [Not Recovered/Not Resolved]
  - Myalgia [Not Recovered/Not Resolved]
  - Connective tissue disorder [Not Recovered/Not Resolved]
  - Cerebrovascular accident [Not Recovered/Not Resolved]
  - Pancreatic failure [Not Recovered/Not Resolved]
  - Arthralgia [Not Recovered/Not Resolved]
  - Diarrhoea [Not Recovered/Not Resolved]

NARRATIVE: CASE EVENT DATE: 201008
